FAERS Safety Report 6322373-5 (Version None)
Quarter: 2009Q3

REPORT INFORMATION
  Report Type: 
  Country: None (occurrence: None)
  Receive Date: 20090824
  Receipt Date: 20090203
  Transmission Date: 20100115
  Serious: No
  Sender: FDA-Public Use
  Company Number: US-ABBOTT-09P-163-0501692-00

PATIENT
  Sex: Female

DRUGS (7)
  1. NIASPAN [Suspect]
     Indication: HIGH DENSITY LIPOPROTEIN DECREASED
     Dates: start: 20090101
  2. ASPIRIN [Concomitant]
     Indication: DRUG USE FOR UNKNOWN INDICATION
  3. KETOPROFEN [Concomitant]
     Indication: DRUG USE FOR UNKNOWN INDICATION
  4. LIPITOR [Concomitant]
     Indication: DRUG USE FOR UNKNOWN INDICATION
  5. ZEGERID [Concomitant]
     Indication: DRUG USE FOR UNKNOWN INDICATION
  6. DETROL LA [Concomitant]
     Indication: DRUG USE FOR UNKNOWN INDICATION
  7. FLUOXETINE [Concomitant]
     Indication: DECREASED APPETITE

REACTIONS (1)
  - BURNING SENSATION [None]
